FAERS Safety Report 9432263 (Version 1)
Quarter: 2013Q3

REPORT INFORMATION
  Report Type: Spontaneous
  Country: US (occurrence: None)
  Receive Date: 20130729
  Receipt Date: 20130729
  Transmission Date: 20140515
  Serious: Yes (Other)
  Sender: FDA-Public Use
  Company Number: 2013P1012619

PATIENT
  Age: 18 Year
  Sex: Male
  Weight: 70.4 kg

DRUGS (12)
  1. MYORISAN [Suspect]
     Indication: ACNE PUSTULAR
     Route: 048
     Dates: start: 20130308, end: 20130409
  2. MYORISAN [Suspect]
     Indication: ACNE
     Route: 048
     Dates: start: 20130308, end: 20130409
  3. MYORISAN [Suspect]
     Indication: ACNE PUSTULAR
     Route: 048
     Dates: start: 20130410, end: 20130501
  4. MYORISAN [Suspect]
     Indication: ACNE
     Route: 048
     Dates: start: 20130410, end: 20130501
  5. CONCERTA [Concomitant]
  6. SINGULAIR [Concomitant]
  7. TRILEPTAL [Concomitant]
  8. RITALIN [Concomitant]
  9. RISPERDAL [Concomitant]
  10. FLOVENT [Concomitant]
  11. MULTIVITAMIN [Concomitant]
  12. ALBUTEROL [Concomitant]

REACTIONS (2)
  - Fatigue [None]
  - Mood altered [None]
